FAERS Safety Report 5350383-3 (Version None)
Quarter: 2007Q2

REPORT INFORMATION
  Report Type: 
  Country: None (occurrence: None)
  Receive Date: 20070605
  Receipt Date: 20070605
  Transmission Date: 20071010
  Serious: No
  Sender: FDA-Public Use
  Company Number: None

PATIENT
  Sex: Female
  Weight: 78.0187 kg

DRUGS (1)
  1. OXYCODONE HCL [Suspect]
     Indication: INTERVERTEBRAL DISC DISORDER
     Dosage: 60 MG BID PO
     Route: 048
     Dates: start: 20070401, end: 20070501

REACTIONS (1)
  - DRUG INTOLERANCE [None]
